FAERS Safety Report 9801872 (Version 1)
Quarter: 2014Q1

REPORT INFORMATION
  Report Type: Spontaneous
  Country: US (occurrence: US)
  Receive Date: 20140107
  Receipt Date: 20140107
  Transmission Date: 20141002
  Serious: Yes (Other)
  Sender: FDA-Public Use
  Company Number: US-PFIZER INC-2014003877

PATIENT
  Sex: Female

DRUGS (4)
  1. EFFEXOR [Suspect]
     Indication: DEPRESSION
     Dosage: 37.5 MG, 1X/DAY
     Route: 048
     Dates: start: 201309
  2. EFFEXOR [Suspect]
     Dosage: 225 MG, 1X/DAY (3 CAPSULES OF 75 MG EACH)
     Route: 048
  3. EFFEXOR XR [Suspect]
     Indication: DEPRESSION
     Dosage: 225 MG (BY TAKING 3 CAPSULES OF 75 MG EACH), 1X/DAY
     Route: 048
  4. CLONAZEPAM [Concomitant]
     Dosage: 1 MG, 1X/DAY (AT NIGHT)

REACTIONS (2)
  - Intervertebral disc protrusion [Unknown]
  - Vitamin D decreased [Unknown]
